FAERS Safety Report 13288492 (Version 2)
Quarter: 2017Q2

REPORT INFORMATION
  Report Type: Report from Study
  Country: JP (occurrence: JP)
  Receive Date: 20170302
  Receipt Date: 20170425
  Transmission Date: 20170830
  Serious: Yes (Other)
  Sender: FDA-Public Use
  Company Number: JP-BRISTOL-MYERS SQUIBB COMPANY-BMS-2017-016223

PATIENT
  Age: 88 Year
  Sex: Female
  Weight: 49 kg

DRUGS (10)
  1. TAKEPRON [Concomitant]
     Active Substance: LANSOPRAZOLE
     Indication: GASTROOESOPHAGEAL REFLUX DISEASE
     Dosage: 15 MG, QD
     Route: 048
  2. APIXABAN [Suspect]
     Active Substance: APIXABAN
     Indication: CEREBROVASCULAR ACCIDENT PROPHYLAXIS
     Dosage: 2.5 MG, BID
     Route: 048
     Dates: start: 20140527, end: 20160211
  3. APIXABAN [Suspect]
     Active Substance: APIXABAN
     Indication: PRODUCT USED FOR UNKNOWN INDICATION
     Dosage: 2.5 MG, BID
     Route: 048
     Dates: start: 20160502
  4. LASIX [Suspect]
     Active Substance: FUROSEMIDE
     Indication: PRODUCT USED FOR UNKNOWN INDICATION
     Dosage: 20 MG, QD
     Route: 048
     Dates: start: 20160220
  5. DEPAS [Concomitant]
     Active Substance: ETIZOLAM
     Indication: SOMATIC SYMPTOM DISORDER
     Dosage: 1 TAB, QD
     Route: 048
  6. SULPERAZON [Concomitant]
     Active Substance: CEFOPERAZONE SODIUM\SULBACTAM SODIUM
     Indication: PROPHYLAXIS
     Dosage: 2 G, UNK
     Route: 042
     Dates: start: 20160208, end: 20160211
  7. MAGNESIUM OXIDE. [Concomitant]
     Active Substance: MAGNESIUM OXIDE
     Indication: CONSTIPATION
     Dosage: 1 G, QD
     Route: 048
  8. MIRTAZAPINE. [Concomitant]
     Active Substance: MIRTAZAPINE
     Indication: DEPRESSION
     Dosage: 15 MG, QD
     Route: 048
  9. NAIXAN                             /00256201/ [Concomitant]
     Active Substance: NAPROXEN
     Indication: HEADACHE
     Dosage: 2 TAB, UNK
     Route: 048
  10. APIXABAN [Suspect]
     Active Substance: APIXABAN
     Indication: PRODUCT USED FOR UNKNOWN INDICATION
     Dosage: 2.5 MG, QD
     Route: 048
     Dates: start: 20160215, end: 20160502

REACTIONS (14)
  - Haemorrhage subcutaneous [Recovered/Resolved]
  - Cholelithotomy [Unknown]
  - Insomnia [Recovering/Resolving]
  - Haemorrhage urinary tract [Recovered/Resolved]
  - Pneumonia [Recovered/Resolved]
  - Off label use [Unknown]
  - Packed red blood cell transfusion [Unknown]
  - Catheter placement [Unknown]
  - Fall [Unknown]
  - Anaemia [Recovered/Resolved]
  - Influenza [Recovered/Resolved]
  - Hypokalaemia [Recovered/Resolved]
  - Urinary tract infection bacterial [Recovered/Resolved]
  - Cardiac failure [Recovering/Resolving]

NARRATIVE: CASE EVENT DATE: 20150911
